FAERS Safety Report 8936920 (Version 2)
Quarter: 2012Q4

REPORT INFORMATION
  Report Type: Report from Study
  Country: CA (occurrence: CA)
  Receive Date: 20121130
  Receipt Date: 20121214
  Transmission Date: 20130627
  Serious: Yes (Hospitalization)
  Sender: FDA-Public Use
  Company Number: CA-ROCHE-1159592

PATIENT
  Age: 78 Year
  Sex: Female
  Weight: 72.2 kg

DRUGS (11)
  1. BEVACIZUMAB [Suspect]
     Indication: OVARIAN CANCER
     Dosage: last dose prior to SAE:25/Oct/2012 dose 1139 mg
     Route: 042
     Dates: start: 20120405, end: 20121025
  2. PACLITAXEL [Suspect]
     Indication: OVARIAN CANCER
     Dosage: 175 mg/m2, last dose prior to SAE on 26/jul/2012
     Route: 042
     Dates: start: 20120405
  3. CARBOPLATIN [Suspect]
     Indication: OVARIAN CANCER
     Dosage: auc 6, last dose prior to SAE on 26/jul/2012
     Route: 042
     Dates: start: 20120405
  4. VITAMIN D [Concomitant]
     Route: 065
     Dates: start: 201001
  5. PANTOPRAZOLE [Concomitant]
     Route: 065
     Dates: start: 20120615
  6. ARISTOCORT [Concomitant]
     Dosage: 2/app
     Route: 065
     Dates: start: 20120919
  7. MAGNESIUM GLUCOHEPTONATE [Concomitant]
     Route: 065
     Dates: start: 20121025
  8. CRESTOR [Concomitant]
     Route: 065
     Dates: start: 200901
  9. ASPIRIN [Concomitant]
     Route: 065
     Dates: start: 201001, end: 20121121
  10. CALCIUM [Concomitant]
     Route: 065
     Dates: start: 201001
  11. FELODIPINE [Concomitant]
     Route: 048
     Dates: start: 20121127

REACTIONS (1)
  - Leukoencephalopathy [Recovering/Resolving]
